FAERS Safety Report 20160272 (Version 1)
Quarter: 2021Q4

REPORT INFORMATION
  Report Type: Spontaneous
  Country: US (occurrence: None)
  Receive Date: 20211207
  Receipt Date: 20211207
  Transmission Date: 20220303
  Serious: Yes (Hospitalization)
  Sender: FDA-Public Use
  Company Number: None

PATIENT
  Age: 65 Year
  Sex: Female

DRUGS (7)
  1. HUMIRA [Suspect]
     Active Substance: ADALIMUMAB
     Indication: Crohn^s disease
     Dosage: OTHER FREQUENCY : Q2WKS;?
     Route: 058
     Dates: start: 20180127
  2. ATORVASTATIN [Concomitant]
     Active Substance: ATORVASTATIN
  3. LOSARTAN [Concomitant]
  4. POT-OMEPRAZOLE [Concomitant]
  5. POT CHLORIDE [Concomitant]
  6. VITAMIN D3 [Concomitant]
     Active Substance: CHOLECALCIFEROL
  7. WELLBUTRIN [Concomitant]

REACTIONS (2)
  - Crohn^s disease [None]
  - Therapy interrupted [None]

NARRATIVE: CASE EVENT DATE: 20211207
